FAERS Safety Report 15757226 (Version 1)
Quarter: 2018Q4

REPORT INFORMATION
  Report Type: Spontaneous
  Country: GR (occurrence: GR)
  Receive Date: 20181224
  Receipt Date: 20181224
  Transmission Date: 20190205
  Serious: Yes (Other)
  Sender: FDA-Public Use
  Company Number: GR-PFIZER INC-2018523488

PATIENT
  Age: 70 Year
  Sex: Male

DRUGS (4)
  1. ARACYTIN [Suspect]
     Active Substance: CYTARABINE
     Dosage: UNK
     Dates: start: 201705
  2. MITOXANTRONE [Suspect]
     Active Substance: MITOXANTRONE HYDROCHLORIDE
     Indication: ACUTE MYELOID LEUKAEMIA
     Dosage: UNK
     Dates: start: 201703
  3. ARACYTIN [Suspect]
     Active Substance: CYTARABINE
     Indication: ACUTE MYELOID LEUKAEMIA
     Dosage: UNK
     Dates: start: 201703
  4. MITOXANTRONE [Suspect]
     Active Substance: MITOXANTRONE HYDROCHLORIDE
     Dosage: UNK
     Dates: start: 201705

REACTIONS (4)
  - Respiratory tract infection fungal [Unknown]
  - Rectal lesion [Unknown]
  - Haemorrhagic disorder [Unknown]
  - Malignant melanoma [Unknown]
